FAERS Safety Report 21683873 (Version 1)
Quarter: 2022Q4

REPORT INFORMATION
  Report Type: Report from Study
  Country: US (occurrence: US)
  Receive Date: 20221205
  Receipt Date: 20221205
  Transmission Date: 20230113
  Serious: No
  Sender: FDA-Public Use
  Company Number: US-ABBVIE-4174051

PATIENT
  Age: 64 Year
  Sex: Male

DRUGS (2)
  1. HUMIRA [Suspect]
     Active Substance: ADALIMUMAB
     Indication: Proctitis ulcerative
     Dosage: ONE IN ONCE?DAY ONE?FORM STRENGTH 80 MG
     Route: 058
     Dates: start: 202210, end: 202210
  2. HUMIRA [Suspect]
     Active Substance: ADALIMUMAB
     Dosage: ONE IN ONCE?DAY FIFTEEN?FORM STRENGTH 80 MG
     Route: 058

REACTIONS (1)
  - Depression [Unknown]

NARRATIVE: CASE EVENT DATE: 20221001
